FAERS Safety Report 14813224 (Version 1)
Quarter: 2018Q2

REPORT INFORMATION
  Report Type: Spontaneous
  Country: US (occurrence: US)
  Receive Date: 20180426
  Receipt Date: 20180426
  Transmission Date: 20180711
  Serious: Yes (Other)
  Sender: FDA-Public Use
  Company Number: US-JNJFOC-20180415139

PATIENT
  Age: 21 Year
  Sex: Female
  Weight: 72.58 kg

DRUGS (2)
  1. NEUTROGENA OIL FREE ACNE WASH REDNESS SOOTHING FACIAL CLEANSER [Suspect]
     Active Substance: SALICYLIC ACID
     Indication: REMOVAL OF INERT MATTER FROM SKIN OR SUBCUTANEOUS TISSUE
     Dosage: A PUMP AND HALF SIZE AMOUNT TWICE A DAY ONE IN THE MORNING AND ONCE AT NIGHT
     Route: 061
     Dates: start: 201804, end: 20180411
  2. NEUTROGENA OIL FREE ACNE WASH REDNESS SOOTHING FACIAL CLEANSER [Suspect]
     Active Substance: SALICYLIC ACID
     Indication: ERYTHEMA
     Dosage: A PUMP AND HALF SIZE AMOUNT TWICE A DAY ONE IN THE MORNING AND ONCE AT NIGHT
     Route: 061
     Dates: start: 201804, end: 20180411

REACTIONS (7)
  - Drug ineffective [None]
  - Application site hypersensitivity [None]
  - Application site pruritus [Not Recovered/Not Resolved]
  - Application site dryness [Not Recovered/Not Resolved]
  - Application site pain [Not Recovered/Not Resolved]
  - Application site swelling [Not Recovered/Not Resolved]
  - Application site rash [Not Recovered/Not Resolved]

NARRATIVE: CASE EVENT DATE: 20180410
